FAERS Safety Report 23471902 (Version 1)
Quarter: 2024Q1

REPORT INFORMATION
  Report Type: Spontaneous
  Country: US (occurrence: None)
  Receive Date: 20240202
  Receipt Date: 20240202
  Transmission Date: 20240410
  Serious: No
  Sender: FDA-Public Use
  Company Number: None

PATIENT
  Age: 49 Year
  Sex: Female
  Weight: 114.75 kg

DRUGS (14)
  1. BAQSIMI [Suspect]
     Active Substance: GLUCAGON
     Indication: Hypoglycaemia
     Dosage: OTHER QUANTITY : 1 INHALATION(S);?
     Route: 055
     Dates: start: 20240201
  2. NOVOLOG [Concomitant]
     Active Substance: INSULIN ASPART
  3. LISINOPRIL [Concomitant]
  4. CRESTOR [Concomitant]
     Active Substance: ROSUVASTATIN CALCIUM
  5. CYMBALTA [Concomitant]
  6. ALDOSTERONE [Concomitant]
  7. ALDOSTERONE [Concomitant]
  8. BREZTRI [Concomitant]
     Active Substance: BUDESONIDE\FORMOTEROL\GLYCOPYRROLATE
  9. NUVIGIL [Concomitant]
  10. ZETIA [Concomitant]
  11. CIMETIDINE [Concomitant]
  12. One a day vitamin [Concomitant]
  13. zinc magnesium [Concomitant]
  14. VITAMIN C [Concomitant]
     Active Substance: ASCORBIC ACID

REACTIONS (2)
  - Eye pain [None]
  - Sinus pain [None]

NARRATIVE: CASE EVENT DATE: 20240201
